FAERS Safety Report 14219966 (Version 1)
Quarter: 2017Q4

REPORT INFORMATION
  Report Type: Spontaneous
  Country: US (occurrence: US)
  Receive Date: 20171123
  Receipt Date: 20171123
  Transmission Date: 20180321
  Serious: Yes (Hospitalization, Other)
  Sender: FDA-Public Use
  Company Number: US-JNJFOC-20171030286

PATIENT
  Age: 68 Year

DRUGS (5)
  1. SOLU-MEDROL [Suspect]
     Active Substance: METHYLPREDNISOLONE SODIUM SUCCINATE
     Indication: PLASMA CELL MYELOMA
     Dosage: LABEL STRENGTH 40 MG/ML
     Route: 042
     Dates: start: 20160421, end: 20160505
  2. REVLIMID [Suspect]
     Active Substance: LENALIDOMIDE
     Indication: PLASMA CELL MYELOMA
     Dosage: LABEL STRENGTH 5 MG??FREQUENCY: ONE TABLET 3 TIMES WEEKLY
     Route: 048
     Dates: start: 20160515, end: 20160624
  3. REVLIMID [Suspect]
     Active Substance: LENALIDOMIDE
     Indication: PLASMA CELL MYELOMA
     Dosage: 21 DAYS ON 7 DAYS OFF
     Route: 048
     Dates: start: 20170406, end: 20170601
  4. DARZALEX [Suspect]
     Active Substance: DARATUMUMAB
     Indication: PLASMA CELL MYELOMA
     Dosage: LABEL STRENGTH 16 MG/KG
     Route: 042
     Dates: start: 20160218, end: 20160505
  5. DEXAMETHASONE. [Suspect]
     Active Substance: DEXAMETHASONE
     Indication: PLASMA CELL MYELOMA
     Dosage: LABEL STRENGTH 4 MG, FREQUENCY: DAY BEFORE TREATMENT, DAY OF AND 3 DAYS AFTER TREATMENT
     Route: 048
     Dates: start: 20160505, end: 20160514

REACTIONS (4)
  - Muscular weakness [Unknown]
  - Fall [Unknown]
  - Anaemia [Recovered/Resolved]
  - Back pain [Unknown]

NARRATIVE: CASE EVENT DATE: 20160515
